FAERS Safety Report 5423737-4 (Version None)
Quarter: 2007Q3

REPORT INFORMATION
  Report Type: 
  Country: None (occurrence: None)
  Receive Date: 20070727
  Receipt Date: 20040517
  Transmission Date: 20080115
  Serious: Yes (Hospitalization)
  Sender: FDA-Public Use
  Company Number: THYM-10162

PATIENT
  Age: 55 Year
  Sex: Male
  Weight: 65.318 kg

DRUGS (7)
  1. THYMOGLOBULIN [Suspect]
     Indication: RENAL TRANSPLANT
     Dosage: 1 MG/KG QD
     Dates: start: 20031009, end: 20031010
  2. ASPIRIN [Concomitant]
  3. LOPRESSOR [Concomitant]
  4. NITROGLYCERIN [Concomitant]
  5. CELLCEPT [Concomitant]
  6. PREDNISONE TAB [Concomitant]
  7. PROGRAF [Concomitant]

REACTIONS (1)
  - MYOCARDIAL INFARCTION [None]
